FAERS Safety Report 25099268 (Version 1)
Quarter: 2025Q1

REPORT INFORMATION
  Report Type: Report from Study
  Country: BR (occurrence: BR)
  Receive Date: 20250320
  Receipt Date: 20250320
  Transmission Date: 20250409
  Serious: Yes (Other)
  Sender: BAYER HEALTHCARE PHARMACEUTICALS INC.
  Company Number: BR-BAYER-2025A033855

PATIENT
  Sex: Male

DRUGS (2)
  1. ADEMPAS [Suspect]
     Active Substance: RIOCIGUAT
     Indication: Pulmonary hypertension
  2. ADEMPAS [Suspect]
     Active Substance: RIOCIGUAT
     Indication: Pulmonary hypertension
     Dates: start: 20240610

REACTIONS (9)
  - Syncope [Recovering/Resolving]
  - Haemoptysis [None]
  - Oesophageal ulcer [None]
  - Blood pressure decreased [Recovering/Resolving]
  - Adverse reaction [None]
  - Dizziness [Recovering/Resolving]
  - Fall [None]
  - Hiccups [None]
  - Gastritis [None]
